FAERS Safety Report 25724883 (Version 2)
Quarter: 2025Q3

REPORT INFORMATION
  Report Type: Report from Study
  Country: CA (occurrence: CA)
  Receive Date: 20250826
  Receipt Date: 20250828
  Transmission Date: 20251021
  Serious: Yes (Other)
  Sender: ABBVIE
  Company Number: CA-ABBVIE-6382766

PATIENT
  Age: 60 Year
  Sex: Female

DRUGS (5)
  1. VYALEV [Suspect]
     Active Substance: FOSCARBIDOPA\FOSLEVODOPA
     Indication: Product used for unknown indication
     Route: 058
     Dates: start: 20250605
  2. CARBIDOPA AND LEVODOPA [Concomitant]
     Active Substance: CARBIDOPA\LEVODOPA
     Indication: Product used for unknown indication
  3. Neuropro [Concomitant]
     Indication: Product used for unknown indication
  4. AMANTADINE [Concomitant]
     Active Substance: AMANTADINE
     Indication: Product used for unknown indication
  5. ENTACAPONE [Concomitant]
     Active Substance: ENTACAPONE
     Indication: Product used for unknown indication

REACTIONS (12)
  - Arterial occlusive disease [Unknown]
  - Dyspnoea [Unknown]
  - Vomiting [Unknown]
  - Drug ineffective [Unknown]
  - On and off phenomenon [Unknown]
  - Dyskinesia [Unknown]
  - Infusion site pain [Unknown]
  - Infusion site bruising [Unknown]
  - Muscle rigidity [Unknown]
  - Bundle branch block left [Unknown]
  - Dyspnoea [Unknown]
  - Product odour abnormal [Unknown]

NARRATIVE: CASE EVENT DATE: 20250101
